FAERS Safety Report 7559093-5 (Version None)
Quarter: 2011Q2

REPORT INFORMATION
  Report Type: 
  Country: None (occurrence: None)
  Receive Date: 20110621
  Receipt Date: 20110613
  Transmission Date: 20111010
  Serious: Yes (Hospitalization)
  Sender: FDA-Public Use
  Company Number: US-JNJFOC-20110606266

PATIENT
  Sex: Female
  Weight: 90.72 kg

DRUGS (13)
  1. KLONOPIN [Concomitant]
     Indication: RESTLESS LEGS SYNDROME
     Route: 048
     Dates: end: 20110101
  2. UNKNOWN MEDICATION [Concomitant]
     Indication: ANTIINFLAMMATORY THERAPY
     Route: 048
     Dates: start: 20100101
  3. METOPROLOL TARTRATE [Concomitant]
     Indication: HYPERTENSION
     Route: 048
     Dates: start: 20090101
  4. CRYSTALLINE VIT B12 INJ [Concomitant]
     Indication: VITAMIN B12 DEFICIENCY
     Route: 030
     Dates: start: 20090101
  5. CYMBALTA [Concomitant]
     Indication: DEPRESSION
     Dosage: DAILY
     Route: 048
     Dates: start: 20070101
  6. FLONASE [Concomitant]
     Indication: MULTIPLE ALLERGIES
     Route: 045
  7. DOXEPIN [Concomitant]
     Indication: DEPRESSION
     Route: 048
     Dates: start: 20100101, end: 20110601
  8. VITAMIN D [Concomitant]
     Indication: VITAMIN D DEFICIENCY
     Route: 048
     Dates: start: 20070101
  9. ZYRTEC [Concomitant]
     Indication: MULTIPLE ALLERGIES
     Route: 048
     Dates: end: 20110101
  10. NUCYNTA [Suspect]
     Indication: BACK PAIN
     Dosage: 2-4 A DAY
     Route: 048
     Dates: start: 20100101
  11. WELLBUTRIN [Concomitant]
     Indication: DEPRESSION
     Dosage: DAILY
     Route: 048
     Dates: start: 20070101
  12. GABAPENTIN [Concomitant]
     Indication: FIBROMYALGIA
     Route: 048
     Dates: start: 20100101
  13. IRON PILL [Concomitant]
     Indication: ANAEMIA
     Route: 048
     Dates: start: 20060101

REACTIONS (11)
  - INSOMNIA [None]
  - DIARRHOEA [None]
  - RESTLESSNESS [None]
  - AMNESIA [None]
  - SUICIDAL IDEATION [None]
  - HYPERTENSION [None]
  - HALLUCINATION [None]
  - HYPERSENSITIVITY [None]
  - MIGRAINE [None]
  - WEIGHT INCREASED [None]
  - ABDOMINAL DISCOMFORT [None]
